FAERS Safety Report 17911771 (Version 1)
Quarter: 2020Q2

REPORT INFORMATION
  Report Type: Spontaneous
  Country: US (occurrence: US)
  Receive Date: 20200618
  Receipt Date: 20200618
  Transmission Date: 20200714
  Serious: Yes (Hospitalization)
  Sender: FDA-Public Use
  Company Number: None

PATIENT
  Age: 23 Year
  Sex: Female

DRUGS (11)
  1. FLUTICASONE. [Concomitant]
     Active Substance: FLUTICASONE
  2. ONDANSETRON [Concomitant]
     Active Substance: ONDANSETRON
  3. CLINDAMYCIN. [Concomitant]
     Active Substance: CLINDAMYCIN
  4. DOXYCYCL HYC [Concomitant]
  5. METHOTREXATE. [Concomitant]
     Active Substance: METHOTREXATE
  6. ENBREL [Suspect]
     Active Substance: ETANERCEPT
     Indication: RHEUMATOID ARTHRITIS
     Route: 058
     Dates: start: 20190521
  7. CEPHALEXIN. [Concomitant]
     Active Substance: CEPHALEXIN
  8. METHYLPRED [Concomitant]
     Active Substance: METHYLPREDNISOLONE
  9. SMZ/TMP DS [Concomitant]
     Active Substance: SULFAMETHOXAZOLE\TRIMETHOPRIM
  10. VENLAFAXINE [Concomitant]
     Active Substance: VENLAFAXINE HYDROCHLORIDE
  11. NITROFUR MAC [Concomitant]
     Active Substance: NITROFURANTOIN

REACTIONS (2)
  - Infection [None]
  - Condition aggravated [None]

NARRATIVE: CASE EVENT DATE: 202004
